FAERS Safety Report 9661249 (Version 2)
Quarter: 2013Q4

REPORT INFORMATION
  Report Type: Spontaneous
  Country: US (occurrence: None)
  Receive Date: 20131030
  Receipt Date: 20131108
  Transmission Date: 20140711
  Serious: Yes (Life-Threatening, Other)
  Sender: FDA-Public Use
  Company Number: ACO_39211_2013

PATIENT
  Age: 52 Year
  Sex: Female
  Weight: 57.6 kg

DRUGS (7)
  1. AMPYRA [Suspect]
     Indication: PRODUCT USED FOR UNKNOWN INDICATION
     Route: 048
  2. CYMBALTA (DULOXETINE HYDROCHLORIDE) CAPSULE, 20MG [Concomitant]
  3. IRON (FERROUS SULFATE) TABLET 18MG [Concomitant]
  4. VITAMIN D (COLECALCIFEROL) CAPSULE 1000 IU [Concomitant]
  5. VITAMIN E (TOCOPHEROL) CAPSULES 1000 IU [Concomitant]
  6. APAP WITH CODEINE (CODEINE PHOSPHATE, PARACETAMOL) TABLET [Concomitant]
  7. TECFIDERA [Suspect]
     Indication: PRODUCT USED FOR UNKNOWN INDICATION
     Dates: start: 20131025

REACTIONS (4)
  - Respiratory arrest [None]
  - Dysphonia [None]
  - Oropharyngeal pain [None]
  - Food intolerance [None]
